FAERS Safety Report 24707008 (Version 1)
Quarter: 2024Q4

REPORT INFORMATION
  Report Type: Report from Study
  Country: US (occurrence: US)
  Receive Date: 20241206
  Receipt Date: 20241206
  Transmission Date: 20250115
  Serious: Yes (Other)
  Sender: ROCHE
  Company Number: US-ROCHE-10000151005

PATIENT
  Age: 35 Year
  Sex: Female

DRUGS (1)
  1. OCREVUS [Suspect]
     Active Substance: OCRELIZUMAB
     Indication: Relapsing multiple sclerosis
     Dosage: 300 MG DAY AND DAY 15 THEN 600 MG EVERY 6 MONTH
     Route: 065

REACTIONS (4)
  - Abortion spontaneous [Unknown]
  - Urinary tract infection [Unknown]
  - Fungal infection [Unknown]
  - Maternal exposure before pregnancy [Unknown]
